FAERS Safety Report 13010327 (Version 1)
Quarter: 2016Q4

REPORT INFORMATION
  Report Type: Spontaneous
  Country: US (occurrence: US)
  Receive Date: 20161207
  Receipt Date: 20161207
  Transmission Date: 20170207
  Serious: No
  Sender: FDA-Public Use
  Company Number: None

PATIENT
  Age: 72 Year
  Sex: Male
  Weight: 72 kg

DRUGS (2)
  1. XARELTO [Suspect]
     Active Substance: RIVAROXABAN
     Indication: PULMONARY EMBOLISM
     Dosage: ?          QUANTITY:1 TABLET(S);?
     Route: 048
     Dates: start: 20160609, end: 20161130
  2. PROVSTATION [Concomitant]

REACTIONS (3)
  - Penile haemorrhage [None]
  - Nasal congestion [None]
  - Epistaxis [None]

NARRATIVE: CASE EVENT DATE: 20160613
